FAERS Safety Report 9334328 (Version 1)
Quarter: 2013Q2

REPORT INFORMATION
  Report Type: Spontaneous
  Country: US (occurrence: US)
  Receive Date: 20130606
  Receipt Date: 20130606
  Transmission Date: 20140414
  Serious: No
  Sender: FDA-Public Use
  Company Number: US-AMGEN-USASP2013000129

PATIENT
  Age: 64 Year
  Sex: Female

DRUGS (7)
  1. PROLIA [Suspect]
     Indication: OSTEOPOROSIS POSTMENOPAUSAL
     Dosage: 60 MG, Q6MO
     Route: 058
     Dates: start: 20120611
  2. AUGMENTIN                          /00756801/ [Concomitant]
     Indication: SINUS CONGESTION
     Dosage: UNK
     Route: 065
     Dates: start: 20130101
  3. AUGMENTIN                          /00756801/ [Concomitant]
     Indication: EUSTACHIAN TUBE DYSFUNCTION
  4. MUCINEX D [Concomitant]
     Indication: SINUS CONGESTION
  5. MUCINEX D [Concomitant]
     Indication: EUSTACHIAN TUBE DYSFUNCTION
  6. MULTIVITAMIN                       /00097801/ [Concomitant]
  7. ADVIL                              /00044201/ [Concomitant]

REACTIONS (3)
  - Tinnitus [Not Recovered/Not Resolved]
  - Sinus congestion [Unknown]
  - Eustachian tube disorder [Unknown]
